FAERS Safety Report 7865495-X (Version None)
Quarter: 2011Q4

REPORT INFORMATION
  Report Type: 
  Country: None (occurrence: None)
  Receive Date: 20111028
  Receipt Date: 20110107
  Transmission Date: 20120403
  Serious: No
  Sender: FDA-Public Use
  Company Number: US-GLAXOSMITHKLINE-A0904087A

PATIENT
  Age: 79 Year
  Sex: Female

DRUGS (6)
  1. CLONIDINE [Concomitant]
  2. CARTIA XT [Concomitant]
  3. ADVAIR DISKUS 100/50 [Suspect]
     Indication: CHRONIC OBSTRUCTIVE PULMONARY DISEASE
     Dosage: 1PUFF TWICE PER DAY
     Route: 055
     Dates: start: 20110102
  4. SEROQUEL [Concomitant]
  5. PAXIL [Concomitant]
  6. KLONOPIN [Concomitant]

REACTIONS (1)
  - MYALGIA [None]
